FAERS Safety Report 5905510-3 (Version None)
Quarter: 2008Q4

REPORT INFORMATION
  Report Type: 
  Country: None (occurrence: None)
  Receive Date: 20081001
  Receipt Date: 20081001
  Transmission Date: 20090506
  Serious: Yes (Death)
  Sender: FDA-Public Use
  Company Number: None

PATIENT
  Age: 62 Year
  Sex: Female
  Weight: 85 kg

DRUGS (13)
  1. PENICILLIN VK [Suspect]
     Indication: LYMPHADENOPATHY
     Dosage: 500MG TID PO
     Route: 048
     Dates: end: 20080904
  2. PENICILLIN VK [Suspect]
     Indication: OROPHARYNGEAL PAIN
     Dosage: 500MG TID PO
     Route: 048
     Dates: end: 20080904
  3. AZITHROMYCIN [Suspect]
     Indication: LYMPHADENOPATHY
     Dosage: 250MG QD PO
     Route: 048
     Dates: start: 20080905
  4. AZITHROMYCIN [Suspect]
     Indication: OROPHARYNGEAL PAIN
     Dosage: 250MG QD PO
     Route: 048
     Dates: start: 20080905
  5. LISINOPRIL AND HYDROCHLOROTHIAZIDE [Concomitant]
  6. LIDOCAINE [Concomitant]
  7. VICODIN [Concomitant]
  8. ACULAR [Concomitant]
  9. SKELAXIN [Concomitant]
  10. FUROSEMIDE [Concomitant]
  11. CLONIDINE [Concomitant]
  12. ALLOPURINOL [Concomitant]
  13. MOXIFLOXACIN HCL [Concomitant]

REACTIONS (5)
  - CARDIAC ARREST [None]
  - MUCOSAL HAEMORRHAGE [None]
  - MULTI-ORGAN FAILURE [None]
  - STEVENS-JOHNSON SYNDROME [None]
  - SYSTEMIC INFLAMMATORY RESPONSE SYNDROME [None]
